FAERS Safety Report 14387157 (Version 1)
Quarter: 2018Q1

REPORT INFORMATION
  Report Type: Spontaneous
  Country: US (occurrence: US)
  Receive Date: 20180115
  Receipt Date: 20180115
  Transmission Date: 20180509
  Serious: Yes (Other)
  Sender: FDA-Public Use
  Company Number: US-SA-2017SA169574

PATIENT
  Age: 46 Year
  Sex: Female
  Weight: 68.03 kg

DRUGS (12)
  1. TAMOXIFEN [Concomitant]
     Active Substance: TAMOXIFEN
     Route: 048
     Dates: start: 20140717
  2. TAXOTERE [Suspect]
     Active Substance: DOCETAXEL
     Route: 051
     Dates: start: 20140217, end: 20140217
  3. DIFLUCAN [Concomitant]
     Active Substance: FLUCONAZOLE
     Route: 048
     Dates: start: 20140109
  4. HYDROQUINONE. [Concomitant]
     Active Substance: HYDROQUINONE
     Dosage: 4% TOPICAL CREAM
     Route: 061
     Dates: start: 20141001
  5. TAXOTERE [Suspect]
     Active Substance: DOCETAXEL
     Route: 051
     Dates: start: 20140217, end: 20140217
  6. PROCHLORPERAZINE. [Concomitant]
     Active Substance: PROCHLORPERAZINE
     Route: 048
     Dates: start: 20131209
  7. DEXAMETHASONE. [Concomitant]
     Active Substance: DEXAMETHASONE
     Route: 048
     Dates: start: 20130909
  8. NYSTATIN. [Concomitant]
     Active Substance: NYSTATIN
     Dosage: 100,000 UNITS/G
     Route: 061
     Dates: start: 20140109
  9. TAXOTERE [Suspect]
     Active Substance: DOCETAXEL
     Route: 051
     Dates: start: 20140106, end: 20140106
  10. LIDOCAINE. [Concomitant]
     Active Substance: LIDOCAINE
     Dosage: 5% TOPICAL OINTMENT
     Route: 061
     Dates: start: 20140520
  11. ONDANSETRON [Concomitant]
     Active Substance: ONDANSETRON
     Route: 048
     Dates: start: 20131209
  12. LEVAQUIN [Concomitant]
     Active Substance: LEVOFLOXACIN
     Route: 048
     Dates: start: 20140113

REACTIONS (1)
  - Alopecia [Not Recovered/Not Resolved]
